FAERS Safety Report 23088651 (Version 2)
Quarter: 2023Q4

REPORT INFORMATION
  Report Type: Spontaneous
  Country: GB (occurrence: GB)
  Receive Date: 20231020
  Receipt Date: 20231027
  Transmission Date: 20240110
  Serious: Yes (Other)
  Sender: FDA-Public Use
  Company Number: None

PATIENT
  Age: 55 Year
  Sex: Female
  Weight: 72 kg

DRUGS (3)
  1. MIRENA [Suspect]
     Active Substance: LEVONORGESTREL
     Dosage: 20?G/DAY
     Route: 015
     Dates: start: 20180918, end: 20231006
  2. ESTRADIOL [Concomitant]
     Active Substance: ESTRADIOL
     Indication: Back pain
     Dosage: 1 DF, BIW
     Dates: start: 20230913
  3. UTROGESTAN [Concomitant]
     Active Substance: PROGESTERONE
     Dosage: 100 MG, QD
     Dates: start: 20230914

REACTIONS (2)
  - Complication of device removal [Not Recovered/Not Resolved]
  - Device breakage [Unknown]

NARRATIVE: CASE EVENT DATE: 20231006
